FAERS Safety Report 7082179-9 (Version None)
Quarter: 2010Q4

REPORT INFORMATION
  Report Type: 
  Country: None (occurrence: None)
  Receive Date: 20101103
  Receipt Date: 20101022
  Transmission Date: 20110411
  Serious: Yes (Hospitalization, Other)
  Sender: FDA-Public Use
  Company Number: FR-GENENTECH-306901

PATIENT
  Sex: Male
  Weight: 22 kg

DRUGS (6)
  1. XOLAIR [Suspect]
     Indication: ASTHMA
     Dosage: 300 MG, Q2W
     Dates: start: 20100707
  2. XOLAIR [Suspect]
     Dosage: UNK
     Route: 058
     Dates: start: 20100723
  3. XOLAIR [Suspect]
     Dosage: 150 MG, UNK
     Route: 058
     Dates: start: 20100903
  4. SERETIDE [Concomitant]
     Indication: PRODUCT USED FOR UNKNOWN INDICATION
  5. AERIUS [Concomitant]
     Indication: PRODUCT USED FOR UNKNOWN INDICATION
  6. SINGULAIR [Concomitant]
     Indication: PRODUCT USED FOR UNKNOWN INDICATION

REACTIONS (7)
  - ARTHRITIS [None]
  - ASTHMA [None]
  - ECZEMA [None]
  - FATIGUE [None]
  - LYMPHADENOPATHY [None]
  - PYREXIA [None]
  - SERUM SICKNESS [None]
